FAERS Safety Report 6844296-5 (Version None)
Quarter: 2010Q3

REPORT INFORMATION
  Report Type: 
  Country: None (occurrence: None)
  Receive Date: 20100715
  Receipt Date: 20100701
  Transmission Date: 20110219
  Serious: Yes (Hospitalization)
  Sender: FDA-Public Use
  Company Number: DE-ROCHE-712345

PATIENT
  Sex: Female
  Weight: 56 kg

DRUGS (8)
  1. BEVACIZUMAB [Suspect]
     Dosage: FORM: VIAL, TOTAL DOSE: 930 MG, LAST DOSE PRIOR TO SAE: 26 MAY 2010
     Route: 042
     Dates: start: 20100322
  2. TRASTUZUMAB [Suspect]
     Dosage: LOADING DOSE, FORM: VIALS
     Route: 042
     Dates: start: 20100322
  3. TRASTUZUMAB [Suspect]
     Dosage: MAINTENANCE DOSE, FORM: VIALS, TOTAL DOSE: 496 MG, LAST DOSE PRIOR TO SAE: 26 MAY 2010
     Route: 042
  4. DOCETAXEL [Suspect]
     Dosage: TOTAL DOSE: 117 MG, FORM: VIALS, LAST DOSE PRIOR TO SAE: 26 MAY 2010
     Route: 042
     Dates: start: 20100322
  5. CARBOPLATIN [Suspect]
     Dosage: DOSE FORM: VIALS, DOSE LEVEL: 6AUC, LAST DOSE PRIOR TO SAE: 26 MAY 2010
     Route: 042
     Dates: start: 20100322
  6. ENALAPRIL MALEATE [Concomitant]
     Dates: start: 20100525
  7. METOHEXAL [Concomitant]
     Dosage: DRUG NAME: METOHEXAL 142.5
     Dates: start: 20100525
  8. LEVOTHYROXINE SODIUM [Concomitant]
     Dates: start: 20100525

REACTIONS (2)
  - INFLUENZA LIKE ILLNESS [None]
  - VERTIGO [None]
